FAERS Safety Report 20819967 (Version 4)
Quarter: 2022Q2

REPORT INFORMATION
  Report Type: Spontaneous
  Country: US (occurrence: US)
  Receive Date: 20220512
  Receipt Date: 20220630
  Transmission Date: 20220721
  Serious: No
  Sender: FDA-Public Use
  Company Number: US-PFIZER INC-2020121123

PATIENT
  Age: 2 Year
  Sex: Male
  Weight: 12.7 kg

DRUGS (4)
  1. GENOTROPIN [Suspect]
     Active Substance: SOMATROPIN
     Indication: Thyroid disorder
     Dosage: 0.6 MG, DAILY (AT BEDTIME)
     Route: 058
     Dates: start: 201908
  2. PHENOBARBITAL [Concomitant]
     Active Substance: PHENOBARBITAL
     Dosage: 16.2 MG, 2X/DAY(MORNING AND IN THE NIGHT)
  3. TOPAMAX [Concomitant]
     Active Substance: TOPIRAMATE
     Dosage: 37.5 MG, DAILY(25MG, ONE TABLET IN THE MORNING AND HALF TABLET AT NIGHT)
  4. OMNITROPE [Concomitant]
     Active Substance: SOMATROPIN
     Dosage: 5 MG, UNK

REACTIONS (5)
  - Device issue [Unknown]
  - Device breakage [Unknown]
  - Drug dose omission by device [Unknown]
  - Device use issue [Unknown]
  - Device malfunction [Unknown]

NARRATIVE: CASE EVENT DATE: 20220429
